FAERS Safety Report 20323614 (Version 2)
Quarter: 2022Q3

REPORT INFORMATION
  Report Type: Spontaneous
  Country: US (occurrence: US)
  Receive Date: 20220111
  Receipt Date: 20220805
  Transmission Date: 20221027
  Serious: Yes (Death, Other)
  Sender: FDA-Public Use
  Company Number: US-AMGEN-USASP2022002103

PATIENT

DRUGS (5)
  1. BLINATUMOMAB [Suspect]
     Active Substance: BLINATUMOMAB
     Indication: Acute lymphocytic leukaemia
     Dosage: UNK
     Route: 065
  2. PONATINIB [Concomitant]
     Active Substance: PONATINIB
     Dosage: 30 MILLIGRAM, QD
  3. PONATINIB [Concomitant]
     Active Substance: PONATINIB
     Dosage: 15 MILLIGRAM, QD
  4. CYTARABINE [Concomitant]
     Active Substance: CYTARABINE
  5. METHOTREXATE [Concomitant]
     Active Substance: METHOTREXATE

REACTIONS (6)
  - Death [Fatal]
  - Haemorrhage [Fatal]
  - Acute lymphocytic leukaemia recurrent [Fatal]
  - Chronic myeloid leukaemia recurrent [Unknown]
  - Therapy non-responder [Unknown]
  - Adverse event [Unknown]
